FAERS Safety Report 5006927-4 (Version None)
Quarter: 2006Q2

REPORT INFORMATION
  Report Type: 
  Country: None (occurrence: None)
  Receive Date: 20060517
  Receipt Date: 20060502
  Transmission Date: 20061013
  Serious: Yes (Death)
  Sender: FDA-Public Use
  Company Number: 34578

PATIENT
  Age: 37 Year
  Sex: Female

DRUGS (12)
  1. EMADINE [Suspect]
     Dosage: OPHT
     Route: 047
  2. DURATEARS NATURALE OINTMENT [Suspect]
     Dosage: OPHT
     Route: 047
  3. DEXAMYTREX [Suspect]
     Dosage: OPHT
     Route: 047
  4. FUSIDIC ACID [Suspect]
     Dosage: OPHT
     Route: 047
  5. GENTAMICIN SULFATE [Suspect]
     Dosage: OPHT
     Route: 047
  6. FLUOROMETHOLONE [Suspect]
     Dosage: OPHT
     Route: 047
  7. TRAFLOXAL EYE OINTMENT [Suspect]
     Dosage: OPHT
     Route: 047
  8. OCULENTUM SIMPLEX [Suspect]
     Dosage: OPHT
     Route: 047
  9. TRAFLOXAL EYE DROPS [Suspect]
     Dosage: OPHT
     Route: 047
  10. CHLORAMPHENICOL HPS EYE OINTMENT [Suspect]
     Dosage: OPHT
     Route: 047
  11. SALBUTAMOL [Concomitant]
  12. ..... [Concomitant]

REACTIONS (2)
  - MALIGNANT NEOPLASM OF EYE [None]
  - MUCOEPIDERMOID CARCINOMA [None]
